FAERS Safety Report 8932657 (Version 2)
Quarter: 2012Q4

REPORT INFORMATION
  Report Type: Report from Study
  Country: CA (occurrence: CA)
  Receive Date: 20121129
  Receipt Date: 20121214
  Transmission Date: 20130627
  Serious: Yes (Hospitalization, Other)
  Sender: FDA-Public Use
  Company Number: CA-JNJFOC-20121111249

PATIENT
  Age: 39 None
  Sex: Male
  Weight: 86.18 kg

DRUGS (1)
  1. REMICADE [Suspect]
     Indication: ANKYLOSING SPONDYLITIS
     Dosage: initiated in 2005 or 2006
     Route: 042

REACTIONS (7)
  - Hip arthroplasty [Unknown]
  - Arthropathy [Unknown]
  - Gait disturbance [Unknown]
  - Arthropathy [Unknown]
  - Body height decreased [Unknown]
  - Knee operation [Unknown]
  - Pain [Unknown]
